FAERS Safety Report 20872664 (Version 1)
Quarter: 2022Q2

REPORT INFORMATION
  Report Type: Spontaneous
  Country: FR (occurrence: FR)
  Receive Date: 20220525
  Receipt Date: 20220525
  Transmission Date: 20220721
  Serious: Yes (Hospitalization, Other)
  Sender: FDA-Public Use
  Company Number: None

PATIENT
  Age: 37 Year
  Sex: Male

DRUGS (4)
  1. XANAX [Suspect]
     Active Substance: ALPRAZOLAM
     Dosage: 0.5 MG, 1X/DAY (IN THE EVENING AS NEEDED)
     Route: 048
     Dates: start: 2015
  2. OXAZEPAM [Suspect]
     Active Substance: OXAZEPAM
     Dosage: UNK, DAILY (3 TO 4 TABLETS PER DAY)
     Route: 048
     Dates: start: 2015
  3. ACETAMINOPHEN\CODEINE PHOSPHATE [Suspect]
     Active Substance: ACETAMINOPHEN\CODEINE PHOSPHATE
     Dosage: UNK, DAILY (4 TO 5 CAPSULES PER DAY)
     Route: 048
     Dates: start: 2021
  4. TOBACCO LEAF [Suspect]
     Active Substance: TOBACCO LEAF
     Dosage: UNK (13 PACKET PER YEAR)
     Route: 055

REACTIONS (9)
  - Drug dependence [Not Recovered/Not Resolved]
  - Drug abuse [Not Recovered/Not Resolved]
  - Alcoholic seizure [Recovered/Resolved]
  - Jaundice [Not Recovered/Not Resolved]
  - Disease recurrence [Not Recovered/Not Resolved]
  - Abdominal pain [Recovering/Resolving]
  - Hepatic steatosis [Not Recovered/Not Resolved]
  - Contraindicated product administered [Unknown]
  - Medication overuse headache [Not Recovered/Not Resolved]

NARRATIVE: CASE EVENT DATE: 20150101
